FAERS Safety Report 4354277-1 (Version None)
Quarter: 2004Q2

REPORT INFORMATION
  Report Type: 
  Country: None (occurrence: None)
  Receive Date: 20040503
  Receipt Date: 20040416
  Transmission Date: 20050107
  Serious: Yes (Life-Threatening)
  Sender: FDA-Public Use
  Company Number: J200401933

PATIENT
  Age: 52 Year
  Sex: Male

DRUGS (5)
  1. MYSLEE - (ZOLPIDEM) - TABLET - 5MG [Suspect]
     Indication: INSOMNIA
     Dosage: 5MG PO
     Route: 048
     Dates: end: 20030529
  2. DORAL [Concomitant]
  3. SEPAZON (CLOXAZOLAM) [Concomitant]
  4. LIMAS (LITHIUM CARBONATE) [Concomitant]
  5. TREMIN (TRIHEXYPHENIDYL HYDROCHLORIDE) [Concomitant]

REACTIONS (3)
  - DEPRESSED LEVEL OF CONSCIOUSNESS [None]
  - ROAD TRAFFIC ACCIDENT [None]
  - SOMNOLENCE [None]
